FAERS Safety Report 9210568 (Version 2)
Quarter: 2013Q2

REPORT INFORMATION
  Report Type: Spontaneous
  Country: US (occurrence: US)
  Receive Date: 20130404
  Receipt Date: 20130502
  Transmission Date: 20140414
  Serious: No
  Sender: FDA-Public Use
  Company Number: US-PFIZER INC-2013104561

PATIENT
  Age: 59 Year
  Sex: Male

DRUGS (4)
  1. DOXAZOSIN [Suspect]
     Indication: BENIGN PROSTATIC HYPERPLASIA
     Dosage: 1/2 TAB X 1 WEEK, DAILY
     Dates: start: 20130219
  2. DOXAZOSIN [Suspect]
     Dosage: 1 TAB X 1 WEEK, DAILY
  3. DOXAZOSIN [Suspect]
     Dosage: 2 TABS X 1 WEEK, DAILY
     Dates: end: 20130312
  4. RAPAFLO [Suspect]
     Indication: BENIGN PROSTATIC HYPERPLASIA
     Dosage: 1 DF, 1X/DAY
     Route: 048
     Dates: start: 20130313

REACTIONS (1)
  - Platelet count decreased [Unknown]
